FAERS Safety Report 7803432-4 (Version None)
Quarter: 2011Q4

REPORT INFORMATION
  Report Type: 
  Country: None (occurrence: None)
  Receive Date: 20111007
  Receipt Date: 20110926
  Transmission Date: 20120403
  Serious: Yes (Other)
  Sender: FDA-Public Use
  Company Number: US-BAUSCH-2011BL006672

PATIENT
  Age: 57 Year
  Sex: Male

DRUGS (2)
  1. PREDNISOLONE [Suspect]
     Indication: POSTOPERATIVE CARE
     Route: 047
  2. ARTIFICIAL TEARS [Concomitant]
     Indication: POSTOPERATIVE CARE
     Route: 047

REACTIONS (2)
  - EYE OPERATION COMPLICATION [None]
  - KERATITIS [None]
